FAERS Safety Report 9961844 (Version 1)
Quarter: 2014Q1

REPORT INFORMATION
  Report Type: Spontaneous
  Country: US (occurrence: US)
  Receive Date: 20140305
  Receipt Date: 20140305
  Transmission Date: 20141002
  Serious: No
  Sender: FDA-Public Use
  Company Number: US-ABBVIE-13P-163-1111503-00

PATIENT
  Age: 70 Year
  Sex: Male
  Weight: 75.36 kg

DRUGS (8)
  1. HUMIRA [Suspect]
     Indication: COLITIS ULCERATIVE
     Dates: start: 201306
  2. AZIOTHIOPRINE [Concomitant]
     Indication: COLITIS ULCERATIVE
  3. BENICAR [Concomitant]
     Indication: HYPERTENSION
  4. CLOPIDOGREL BISULFATE [Concomitant]
     Indication: ANTICOAGULANT THERAPY
     Dates: start: 2008
  5. CILOSTAZOL [Concomitant]
     Indication: ANTICOAGULANT THERAPY
  6. DOXAZOSIN MESYLATE [Concomitant]
     Indication: PRODUCT USED FOR UNKNOWN INDICATION
  7. CARVEDILOL [Concomitant]
     Indication: PRODUCT USED FOR UNKNOWN INDICATION
  8. BUMETANIDE [Concomitant]
     Indication: HYPERTENSION

REACTIONS (2)
  - Wrong technique in drug usage process [Recovered/Resolved]
  - Incorrect route of drug administration [Recovered/Resolved]
